FAERS Safety Report 6381021-9 (Version None)
Quarter: 2009Q3

REPORT INFORMATION
  Report Type: 
  Country: None (occurrence: None)
  Receive Date: 20090929
  Receipt Date: 20090915
  Transmission Date: 20100115
  Serious: Yes (Hospitalization)
  Sender: FDA-Public Use
  Company Number: FR-MERCK-0909FRA00050

PATIENT
  Age: 61 Year
  Sex: Male

DRUGS (21)
  1. ZETIA [Suspect]
     Route: 048
     Dates: start: 20050101, end: 20080724
  2. ZETIA [Suspect]
     Route: 048
     Dates: start: 20081223, end: 20090217
  3. CLOPIDOGREL BISULFATE [Concomitant]
     Route: 048
     Dates: end: 20080724
  4. CLOPIDOGREL BISULFATE [Concomitant]
     Route: 048
     Dates: start: 20080801, end: 20090217
  5. CLOPIDOGREL BISULFATE [Concomitant]
     Route: 048
     Dates: start: 20090301
  6. ALLOPURINOL [Suspect]
     Route: 048
     Dates: start: 20050101, end: 20080724
  7. ALLOPURINOL [Suspect]
     Route: 048
     Dates: start: 20081223, end: 20090217
  8. TRIMETAZIDINE HYDROCHLORIDE [Concomitant]
     Route: 048
     Dates: end: 20080724
  9. TRIMETAZIDINE HYDROCHLORIDE [Concomitant]
     Route: 048
     Dates: start: 20080801, end: 20090217
  10. TRIMETAZIDINE HYDROCHLORIDE [Concomitant]
     Route: 048
     Dates: start: 20090223
  11. PYGEUM [Concomitant]
     Route: 048
     Dates: end: 20080724
  12. PYGEUM [Concomitant]
     Route: 048
     Dates: start: 20081223, end: 20090217
  13. PYGEUM [Concomitant]
     Route: 048
     Dates: start: 20090301
  14. SAW PALMETTO [Concomitant]
     Route: 048
     Dates: end: 20080724
  15. SAW PALMETTO [Concomitant]
     Route: 048
     Dates: start: 20081223, end: 20090217
  16. SAW PALMETTO [Concomitant]
     Route: 048
     Dates: start: 20090301
  17. METOPROLOL TARTRATE [Concomitant]
     Route: 048
     Dates: end: 20080724
  18. METOPROLOL TARTRATE [Concomitant]
     Route: 048
     Dates: start: 20080801, end: 20090217
  19. METOPROLOL TARTRATE [Concomitant]
     Route: 048
     Dates: start: 20090301
  20. LEVOCETIRIZINE DIHYDROCHLORIDE [Concomitant]
     Route: 065
     Dates: end: 20080724
  21. VALACYCLOVIR HYDROCHLORIDE [Concomitant]
     Route: 065
     Dates: end: 20080724

REACTIONS (2)
  - PURPURA [None]
  - THROMBOCYTOPENIA [None]
